FAERS Safety Report 6196839-5 (Version None)
Quarter: 2009Q2

REPORT INFORMATION
  Report Type: 
  Country: None (occurrence: None)
  Receive Date: 20090520
  Receipt Date: 20090511
  Transmission Date: 20091009
  Serious: Yes (Other)
  Sender: FDA-Public Use
  Company Number: US-JNJFOC-20090106518

PATIENT
  Sex: Female
  Weight: 50.8 kg

DRUGS (5)
  1. EXTRA STRENGTH TYLENOL [Suspect]
     Indication: INFLUENZA
     Route: 048
  2. EXTRA STRENGTH TYLENOL [Suspect]
     Indication: PYREXIA
     Route: 048
  3. LEVOTHYROXINE SODIUM [Concomitant]
     Indication: HYPERTHYROIDISM
  4. PREMARIN [Concomitant]
     Indication: HORMONE REPLACEMENT THERAPY
  5. OMEPRAZOLE [Concomitant]
     Indication: GASTROOESOPHAGEAL REFLUX DISEASE

REACTIONS (8)
  - ACCIDENTAL OVERDOSE [None]
  - AURICULAR SWELLING [None]
  - DRUG HYPERSENSITIVITY [None]
  - ERYTHEMA [None]
  - HEPATIC ENZYME INCREASED [None]
  - INCORRECT DRUG DOSAGE FORM ADMINISTERED [None]
  - SKIN EXFOLIATION [None]
  - SWELLING FACE [None]
